FAERS Safety Report 7422168-5 (Version None)
Quarter: 2011Q2

REPORT INFORMATION
  Report Type: 
  Country: None (occurrence: None)
  Receive Date: 20110418
  Receipt Date: 20110216
  Transmission Date: 20111010
  Serious: Yes (Hospitalization, Other)
  Sender: FDA-Public Use
  Company Number: US-BAYER-201023244NA

PATIENT
  Age: 41 Year
  Sex: Female
  Weight: 83.9 kg

DRUGS (25)
  1. YAZ [Suspect]
     Indication: ORAL CONTRACEPTION
     Dosage: UNK
     Route: 048
     Dates: start: 20070401, end: 20080501
  2. VALTREX [Concomitant]
     Dosage: UNK
     Dates: start: 20070401, end: 20080501
  3. SEROQUEL [Concomitant]
     Dosage: UNK
     Dates: start: 20070401, end: 20080501
  4. ZOLPIDEM [Concomitant]
     Dosage: UNK
     Dates: start: 20070401, end: 20080501
  5. CHROMIUM CHLORIDE [Concomitant]
  6. ASACOL [Concomitant]
     Indication: COLITIS
  7. FEXOFENADINE [Concomitant]
     Dosage: UNK
     Dates: start: 20070401, end: 20080501
  8. LAMICTAL [Concomitant]
     Dosage: UNK
     Dates: start: 20070301, end: 20080501
  9. OSCAL [Concomitant]
  10. ALLEGRA [Concomitant]
     Indication: MULTIPLE ALLERGIES
  11. HYDROCHLOROTHIAZIDE [Concomitant]
  12. ACICLOVIR [Concomitant]
     Indication: ACNE
  13. BUPROPION HYDROCHLORIDE [Concomitant]
     Dosage: UNK
     Dates: start: 20070401, end: 20080501
  14. TOPAMAX [Concomitant]
     Dosage: UNK
     Dates: start: 20070401, end: 20080501
  15. WELLBUTRIN [Concomitant]
     Dosage: UNK
     Dates: start: 20070401, end: 20080501
  16. ULTRAM [Concomitant]
  17. PROTONIX [Concomitant]
  18. YASMIN [Suspect]
     Indication: ORAL CONTRACEPTION
     Route: 048
     Dates: start: 20061101, end: 20061215
  19. SERTRALINE [Concomitant]
     Dosage: UNK
     Dates: start: 20070401, end: 20080501
  20. CITALOPRAM HYDROBROMIDE [Concomitant]
     Dosage: UNK
     Dates: start: 20070401, end: 20080501
  21. AMBIEN [Concomitant]
  22. MOTRIN [Concomitant]
  23. DEXLANSOPRAZOLE [Concomitant]
     Indication: GASTRIC DISORDER
  24. LORAZEPAM [Concomitant]
     Dosage: UNK
     Dates: start: 20070401, end: 20080501
  25. AMOXICILLIN [Concomitant]
     Dosage: UNK
     Dates: start: 20070401, end: 20080501

REACTIONS (1)
  - DEEP VEIN THROMBOSIS [None]
